FAERS Safety Report 18152241 (Version 2)
Quarter: 2020Q3

REPORT INFORMATION
  Report Type: Spontaneous
  Country: DE (occurrence: DE)
  Receive Date: 20200814
  Receipt Date: 20200820
  Transmission Date: 20201103
  Serious: Yes (Other)
  Sender: FDA-Public Use
  Company Number: DE-ASTRAZENECA-2020SE99800

PATIENT
  Sex: Female

DRUGS (1)
  1. TAGRISSO [Suspect]
     Active Substance: OSIMERTINIB
     Dosage: UNKNOWN
     Route: 048

REACTIONS (7)
  - Stomatitis [Unknown]
  - Nasal crusting [Unknown]
  - Flatulence [Unknown]
  - Nail disorder [Unknown]
  - Product dose omission issue [Recovered/Resolved]
  - Polyneuropathy [Unknown]
  - Hepatic enzyme increased [Unknown]
